FAERS Safety Report 13412464 (Version 4)
Quarter: 2022Q3

REPORT INFORMATION
  Report Type: Spontaneous
  Country: US (occurrence: US)
  Receive Date: 20170406
  Receipt Date: 20220728
  Transmission Date: 20221026
  Serious: No
  Sender: FDA-Public Use
  Company Number: US-JNJFOC-20170309482

PATIENT
  Sex: Male

DRUGS (4)
  1. RISPERDAL [Suspect]
     Active Substance: RISPERIDONE
     Indication: Depression
     Route: 048
     Dates: start: 2001
  2. RISPERDAL [Suspect]
     Active Substance: RISPERIDONE
     Indication: Attention deficit hyperactivity disorder
     Route: 048
     Dates: start: 20020513, end: 20021219
  3. RISPERDAL [Suspect]
     Active Substance: RISPERIDONE
     Indication: Bipolar disorder
     Route: 048
     Dates: end: 2003
  4. RISPERDAL [Suspect]
     Active Substance: RISPERIDONE
     Indication: Schizophrenia

REACTIONS (3)
  - Emotional disorder [Unknown]
  - Gynaecomastia [Unknown]
  - Drug ineffective [Unknown]
